FAERS Safety Report 21138492 (Version 1)
Quarter: 2022Q3

REPORT INFORMATION
  Report Type: Spontaneous
  Country: US (occurrence: None)
  Receive Date: 20220727
  Receipt Date: 20220727
  Transmission Date: 20221027
  Serious: Yes (Hospitalization)
  Sender: FDA-Public Use
  Company Number: None

PATIENT
  Age: 78 Year

DRUGS (20)
  1. WELIREG [Suspect]
     Active Substance: BELZUTIFAN
     Indication: Renal cancer
     Dosage: FREQUENCY : DAILY;?
     Route: 048
  2. AMLODIPINE [Concomitant]
     Active Substance: AMLODIPINE BESYLATE
  3. CALCIUM CITRATE [Concomitant]
     Active Substance: CALCIUM CITRATE
  4. CITRACEL [Concomitant]
  5. COLACE [Concomitant]
     Active Substance: DOCUSATE SODIUM
  6. DEXAMETHASONE [Concomitant]
     Active Substance: DEXAMETHASONE
  7. FISH OIL [Concomitant]
     Active Substance: FISH OIL
  8. FUROSEMIDE [Concomitant]
     Active Substance: FUROSEMIDE
  9. HUMALOG [Concomitant]
     Active Substance: INSULIN LISPRO
  10. LEVOTHYROXINE SODIUM [Concomitant]
     Active Substance: LEVOTHYROXINE SODIUM
  11. LISPRO INJECTION [Concomitant]
  12. LOSARTAN POTASSIUM [Concomitant]
     Active Substance: LOSARTAN POTASSIUM
  13. LOVASTATIN [Concomitant]
     Active Substance: LOVASTATIN
  14. MELATONIN [Concomitant]
     Active Substance: MELATONIN
  15. METFORMIN HYDROCHLORIDE [Concomitant]
     Active Substance: METFORMIN HYDROCHLORIDE
  16. METOPROLOL [Concomitant]
  17. VITAMINS [Concomitant]
     Active Substance: VITAMINS
  18. PHOS-MAK [Concomitant]
  19. VITAMIN D3 [Concomitant]
     Active Substance: CHOLECALCIFEROL
  20. XGEVA [Concomitant]
     Active Substance: DENOSUMAB

REACTIONS (2)
  - COVID-19 [None]
  - Therapy interrupted [None]
